FAERS Safety Report 17843491 (Version 1)
Quarter: 2020Q2

REPORT INFORMATION
  Report Type: Spontaneous
  Country: US (occurrence: US)
  Receive Date: 20200531
  Receipt Date: 20200531
  Transmission Date: 20200714
  Serious: Yes (Other)
  Sender: FDA-Public Use
  Company Number: US-HIKMA PHARMACEUTICALS USA INC.-US-H14001-20-02533

PATIENT
  Age: 57 Year
  Sex: Male

DRUGS (107)
  1. DEXAMETHASONE. [Suspect]
     Active Substance: DEXAMETHASONE
     Route: 048
     Dates: start: 20160126, end: 20160613
  2. DEXAMETHASONE. [Suspect]
     Active Substance: DEXAMETHASONE
     Route: 048
     Dates: start: 20171008, end: 20171028
  3. DEXAMETHASONE. [Suspect]
     Active Substance: DEXAMETHASONE
     Route: 048
     Dates: start: 20170912, end: 20170925
  4. DEXAMETHASONE. [Suspect]
     Active Substance: DEXAMETHASONE
     Route: 048
     Dates: start: 20171128, end: 20180108
  5. DEXAMETHASONE. [Suspect]
     Active Substance: DEXAMETHASONE
     Route: 048
     Dates: start: 20180220, end: 20180312
  6. DEXAMETHASONE. [Suspect]
     Active Substance: DEXAMETHASONE
     Route: 042
     Dates: start: 20180403, end: 20180423
  7. LENALIDOMIDE [Suspect]
     Active Substance: LENALIDOMIDE
     Indication: PLASMA CELL MYELOMA
     Route: 048
     Dates: start: 20101122, end: 20110410
  8. LENALIDOMIDE [Suspect]
     Active Substance: LENALIDOMIDE
     Route: 048
     Dates: start: 20110411, end: 20110605
  9. LENALIDOMIDE [Suspect]
     Active Substance: LENALIDOMIDE
     Route: 048
     Dates: start: 20160629, end: 20160725
  10. LENALIDOMIDE [Suspect]
     Active Substance: LENALIDOMIDE
     Route: 048
     Dates: start: 20170405, end: 20170502
  11. BORTEZOMIB. [Suspect]
     Active Substance: BORTEZOMIB
     Dates: start: 20150120, end: 20160125
  12. BORTEZOMIB. [Suspect]
     Active Substance: BORTEZOMIB
     Dates: start: 20160126, end: 20160613
  13. BORTEZOMIB. [Suspect]
     Active Substance: BORTEZOMIB
     Dates: start: 20160616, end: 20160627
  14. BORTEZOMIB. [Suspect]
     Active Substance: BORTEZOMIB
     Dates: start: 20180403, end: 20180423
  15. BORTEZOMIB. [Suspect]
     Active Substance: BORTEZOMIB
     Dates: start: 20180515, end: 20180604
  16. ELOTUZUMAB. [Suspect]
     Active Substance: ELOTUZUMAB
     Route: 042
     Dates: start: 20170503, end: 20170530
  17. ELOTUZUMAB. [Suspect]
     Active Substance: ELOTUZUMAB
     Route: 042
     Dates: start: 20170912, end: 20170925
  18. ELOTUZUMAB. [Suspect]
     Active Substance: ELOTUZUMAB
     Route: 042
     Dates: start: 20180220, end: 20180312
  19. ELOTUZUMAB. [Suspect]
     Active Substance: ELOTUZUMAB
     Route: 042
     Dates: start: 20180313, end: 20180402
  20. NELFINAVIR [Suspect]
     Active Substance: NELFINAVIR
     Route: 065
     Dates: start: 20170926, end: 20171016
  21. NELFINAVIR [Suspect]
     Active Substance: NELFINAVIR
     Route: 065
     Dates: start: 20171128, end: 20180108
  22. NELFINAVIR [Suspect]
     Active Substance: NELFINAVIR
     Route: 065
     Dates: start: 20180313, end: 20180402
  23. DEXAMETHASONE. [Suspect]
     Active Substance: DEXAMETHASONE
     Route: 048
     Dates: start: 20170308, end: 20170404
  24. DEXAMETHASONE. [Suspect]
     Active Substance: DEXAMETHASONE
     Route: 048
     Dates: start: 20170926, end: 20171016
  25. DEXAMETHASONE. [Suspect]
     Active Substance: DEXAMETHASONE
     Route: 048
     Dates: start: 20180515, end: 20180604
  26. DEXAMETHASONE. [Suspect]
     Active Substance: DEXAMETHASONE
     Route: 042
     Dates: start: 20180109, end: 20180219
  27. LENALIDOMIDE [Suspect]
     Active Substance: LENALIDOMIDE
     Route: 048
     Dates: start: 20161024, end: 20161120
  28. BORTEZOMIB. [Suspect]
     Active Substance: BORTEZOMIB
     Indication: PLASMA CELL MYELOMA
     Route: 040
     Dates: start: 20110404, end: 20110506
  29. BORTEZOMIB. [Suspect]
     Active Substance: BORTEZOMIB
     Dates: start: 20161129, end: 20161213
  30. ELOTUZUMAB. [Suspect]
     Active Substance: ELOTUZUMAB
     Route: 042
     Dates: start: 20171008, end: 20171028
  31. DEXAMETHASONE. [Suspect]
     Active Substance: DEXAMETHASONE
     Route: 048
     Dates: start: 20110411, end: 20110605
  32. DEXAMETHASONE. [Suspect]
     Active Substance: DEXAMETHASONE
     Route: 048
     Dates: start: 20160616, end: 20160627
  33. DEXAMETHASONE. [Suspect]
     Active Substance: DEXAMETHASONE
     Route: 048
     Dates: start: 20161129, end: 20161213
  34. DEXAMETHASONE. [Suspect]
     Active Substance: DEXAMETHASONE
     Route: 048
     Dates: start: 20171017, end: 20171106
  35. DEXAMETHASONE. [Suspect]
     Active Substance: DEXAMETHASONE
     Route: 048
     Dates: start: 20171128, end: 20180108
  36. DEXAMETHASONE. [Suspect]
     Active Substance: DEXAMETHASONE
     Indication: PLASMA CELL MYELOMA
     Route: 042
     Dates: start: 20170308, end: 20170404
  37. DEXAMETHASONE. [Suspect]
     Active Substance: DEXAMETHASONE
     Route: 042
     Dates: start: 20171107, end: 20171127
  38. DEXAMETHASONE. [Suspect]
     Active Substance: DEXAMETHASONE
     Route: 042
     Dates: start: 20180220, end: 20180312
  39. DEXAMETHASONE. [Suspect]
     Active Substance: DEXAMETHASONE
     Route: 042
     Dates: start: 20180424, end: 20180514
  40. LENALIDOMIDE [Suspect]
     Active Substance: LENALIDOMIDE
     Route: 048
     Dates: start: 20161129, end: 20161213
  41. BORTEZOMIB. [Suspect]
     Active Substance: BORTEZOMIB
     Dates: start: 20171008, end: 20171028
  42. BORTEZOMIB. [Suspect]
     Active Substance: BORTEZOMIB
     Dates: start: 20170926, end: 20171016
  43. ELOTUZUMAB. [Suspect]
     Active Substance: ELOTUZUMAB
     Route: 042
     Dates: start: 20180403, end: 20180423
  44. NELFINAVIR [Suspect]
     Active Substance: NELFINAVIR
     Route: 065
     Dates: start: 20170912, end: 20170925
  45. NELFINAVIR [Suspect]
     Active Substance: NELFINAVIR
     Route: 065
     Dates: start: 20180403, end: 20180423
  46. DEXAMETHASONE. [Suspect]
     Active Substance: DEXAMETHASONE
     Route: 048
     Dates: start: 20160629, end: 20160725
  47. DEXAMETHASONE. [Suspect]
     Active Substance: DEXAMETHASONE
     Route: 048
     Dates: start: 20160726, end: 20160810
  48. DEXAMETHASONE. [Suspect]
     Active Substance: DEXAMETHASONE
     Route: 048
     Dates: start: 20170503, end: 20170530
  49. DEXAMETHASONE. [Suspect]
     Active Substance: DEXAMETHASONE
     Route: 048
     Dates: start: 20180313, end: 20180402
  50. DEXAMETHASONE. [Suspect]
     Active Substance: DEXAMETHASONE
     Route: 042
     Dates: start: 20170405, end: 20170502
  51. LENALIDOMIDE [Suspect]
     Active Substance: LENALIDOMIDE
     Route: 048
     Dates: start: 20170103, end: 20170123
  52. BORTEZOMIB. [Suspect]
     Active Substance: BORTEZOMIB
     Dates: start: 20180220, end: 20180312
  53. ELOTUZUMAB. [Suspect]
     Active Substance: ELOTUZUMAB
     Route: 042
     Dates: start: 20180424, end: 20180514
  54. DEXAMETHASONE. [Suspect]
     Active Substance: DEXAMETHASONE
     Route: 048
     Dates: start: 20140610, end: 20150112
  55. DEXAMETHASONE. [Suspect]
     Active Substance: DEXAMETHASONE
     Route: 048
     Dates: start: 20170926, end: 20171016
  56. DEXAMETHASONE. [Suspect]
     Active Substance: DEXAMETHASONE
     Route: 048
     Dates: start: 20180515, end: 20180604
  57. DEXAMETHASONE. [Suspect]
     Active Substance: DEXAMETHASONE
     Route: 042
     Dates: start: 20170503, end: 20170530
  58. DEXAMETHASONE. [Suspect]
     Active Substance: DEXAMETHASONE
     Route: 042
     Dates: start: 20170926, end: 20171016
  59. BORTEZOMIB. [Suspect]
     Active Substance: BORTEZOMIB
     Dates: start: 20170912, end: 20170925
  60. BORTEZOMIB. [Suspect]
     Active Substance: BORTEZOMIB
     Dates: start: 20171017, end: 20171106
  61. ELOTUZUMAB. [Suspect]
     Active Substance: ELOTUZUMAB
     Route: 042
     Dates: start: 20180109, end: 20180219
  62. NELFINAVIR [Suspect]
     Active Substance: NELFINAVIR
     Route: 065
     Dates: start: 20171017, end: 20171106
  63. DEXAMETHASONE. [Suspect]
     Active Substance: DEXAMETHASONE
     Indication: PLASMA CELL MYELOMA
     Route: 048
     Dates: start: 20101122, end: 20110410
  64. DEXAMETHASONE. [Suspect]
     Active Substance: DEXAMETHASONE
     Route: 048
     Dates: start: 20170503, end: 20170530
  65. DEXAMETHASONE. [Suspect]
     Active Substance: DEXAMETHASONE
     Route: 048
     Dates: start: 20170912, end: 20170925
  66. DEXAMETHASONE. [Suspect]
     Active Substance: DEXAMETHASONE
     Route: 048
     Dates: start: 20180109, end: 20180219
  67. DEXAMETHASONE. [Suspect]
     Active Substance: DEXAMETHASONE
     Route: 042
     Dates: start: 20180515, end: 20180604
  68. LENALIDOMIDE [Suspect]
     Active Substance: LENALIDOMIDE
     Route: 048
     Dates: start: 20160726, end: 20160810
  69. BORTEZOMIB. [Suspect]
     Active Substance: BORTEZOMIB
     Dates: start: 20160726, end: 20160810
  70. BORTEZOMIB. [Suspect]
     Active Substance: BORTEZOMIB
     Dates: start: 20171128, end: 20180108
  71. IXAZOMIB [Suspect]
     Active Substance: IXAZOMIB
     Indication: PLASMA CELL MYELOMA
     Route: 048
     Dates: start: 20160829, end: 20161023
  72. ELOTUZUMAB. [Suspect]
     Active Substance: ELOTUZUMAB
     Route: 042
     Dates: start: 20170405, end: 20170502
  73. ELOTUZUMAB. [Suspect]
     Active Substance: ELOTUZUMAB
     Route: 042
     Dates: start: 20171017, end: 20171106
  74. ELOTUZUMAB. [Suspect]
     Active Substance: ELOTUZUMAB
     Route: 042
     Dates: start: 20180515, end: 20180604
  75. NELFINAVIR [Suspect]
     Active Substance: NELFINAVIR
     Indication: PLASMA CELL MYELOMA
     Route: 065
     Dates: start: 20171008, end: 20171028
  76. NELFINAVIR [Suspect]
     Active Substance: NELFINAVIR
     Route: 065
     Dates: start: 20180424, end: 20180514
  77. DEXAMETHASONE. [Suspect]
     Active Substance: DEXAMETHASONE
     Route: 048
     Dates: start: 20171017, end: 20171106
  78. DEXAMETHASONE. [Suspect]
     Active Substance: DEXAMETHASONE
     Route: 048
     Dates: start: 20171107, end: 20171127
  79. DEXAMETHASONE. [Suspect]
     Active Substance: DEXAMETHASONE
     Route: 048
     Dates: start: 20180109, end: 20180219
  80. DEXAMETHASONE. [Suspect]
     Active Substance: DEXAMETHASONE
     Route: 048
     Dates: start: 20180424, end: 20180514
  81. DEXAMETHASONE. [Suspect]
     Active Substance: DEXAMETHASONE
     Route: 042
     Dates: start: 20170912, end: 20170925
  82. DEXAMETHASONE. [Suspect]
     Active Substance: DEXAMETHASONE
     Route: 042
     Dates: start: 20171128, end: 20180108
  83. LENALIDOMIDE [Suspect]
     Active Substance: LENALIDOMIDE
     Route: 048
     Dates: start: 20170308, end: 20170404
  84. LENALIDOMIDE [Suspect]
     Active Substance: LENALIDOMIDE
     Route: 048
     Dates: start: 20170503, end: 20170530
  85. BORTEZOMIB. [Suspect]
     Active Substance: BORTEZOMIB
     Dates: start: 20160629, end: 20160725
  86. BORTEZOMIB. [Suspect]
     Active Substance: BORTEZOMIB
     Dates: start: 20170103, end: 20170123
  87. BORTEZOMIB. [Suspect]
     Active Substance: BORTEZOMIB
     Dates: start: 20180109, end: 20180219
  88. BORTEZOMIB. [Suspect]
     Active Substance: BORTEZOMIB
     Dates: start: 20180313, end: 20180402
  89. ELOTUZUMAB. [Suspect]
     Active Substance: ELOTUZUMAB
     Indication: PLASMA CELL MYELOMA
     Route: 042
     Dates: start: 20170308, end: 20170404
  90. ELOTUZUMAB. [Suspect]
     Active Substance: ELOTUZUMAB
     Route: 042
     Dates: start: 20170926, end: 20171016
  91. ELOTUZUMAB. [Suspect]
     Active Substance: ELOTUZUMAB
     Route: 042
     Dates: start: 20171107, end: 20171127
  92. NELFINAVIR [Suspect]
     Active Substance: NELFINAVIR
     Route: 065
     Dates: start: 20180109, end: 20180219
  93. DEXAMETHASONE. [Suspect]
     Active Substance: DEXAMETHASONE
     Route: 048
     Dates: start: 20170103, end: 20170123
  94. DEXAMETHASONE. [Suspect]
     Active Substance: DEXAMETHASONE
     Route: 048
     Dates: start: 20170405, end: 20170502
  95. DEXAMETHASONE. [Suspect]
     Active Substance: DEXAMETHASONE
     Route: 048
     Dates: start: 20171008, end: 20171028
  96. DEXAMETHASONE. [Suspect]
     Active Substance: DEXAMETHASONE
     Route: 042
     Dates: start: 20171008, end: 20171028
  97. DEXAMETHASONE. [Suspect]
     Active Substance: DEXAMETHASONE
     Route: 042
     Dates: start: 20171017, end: 20171106
  98. DEXAMETHASONE. [Suspect]
     Active Substance: DEXAMETHASONE
     Route: 042
     Dates: start: 20180313, end: 20180402
  99. LENALIDOMIDE [Suspect]
     Active Substance: LENALIDOMIDE
     Route: 048
     Dates: start: 20111109, end: 20140415
  100. BORTEZOMIB. [Suspect]
     Active Substance: BORTEZOMIB
     Dates: start: 20110404, end: 20110506
  101. BORTEZOMIB. [Suspect]
     Active Substance: BORTEZOMIB
     Dates: start: 20171107, end: 20171127
  102. BORTEZOMIB. [Suspect]
     Active Substance: BORTEZOMIB
     Dates: start: 20180424, end: 20180514
  103. IXAZOMIB [Suspect]
     Active Substance: IXAZOMIB
     Route: 048
     Dates: start: 20161024, end: 20161120
  104. ELOTUZUMAB. [Suspect]
     Active Substance: ELOTUZUMAB
     Route: 042
     Dates: start: 20171128, end: 20180108
  105. NELFINAVIR [Suspect]
     Active Substance: NELFINAVIR
     Route: 065
     Dates: start: 20171107, end: 20171127
  106. NELFINAVIR [Suspect]
     Active Substance: NELFINAVIR
     Route: 065
     Dates: start: 20180220, end: 20180312
  107. NELFINAVIR [Suspect]
     Active Substance: NELFINAVIR
     Route: 065
     Dates: start: 20180515, end: 20180604

REACTIONS (4)
  - Neutrophil count decreased [Unknown]
  - Thrombocytopenia [Recovered/Resolved]
  - Haemoglobin decreased [Unknown]
  - Drug ineffective [Unknown]
